FAERS Safety Report 13053703 (Version 2)
Quarter: 2017Q1

REPORT INFORMATION
  Report Type: Spontaneous
  Country: US (occurrence: US)
  Receive Date: 20161222
  Receipt Date: 20170207
  Transmission Date: 20170428
  Serious: Yes (Hospitalization, Other)
  Sender: FDA-Public Use
  Company Number: US-ASTELLAS-2016US049531

PATIENT
  Age: 68 Year
  Sex: Male

DRUGS (6)
  1. PROGRAF [Suspect]
     Active Substance: TACROLIMUS\TACROLIMUS ANHYDROUS
     Indication: HEART TRANSPLANT
     Dosage: 0.5 MG AND 1 MG (PATIENT WAS TAKING BOTH; AT A FREQUENCY OF TWICE A DAY)
     Route: 065
  2. RAPAMUNE [Suspect]
     Active Substance: SIROLIMUS
     Route: 065
  3. RAPAMUNE [Suspect]
     Active Substance: SIROLIMUS
     Route: 065
     Dates: end: 201610
  4. PROGRAF [Suspect]
     Active Substance: TACROLIMUS\TACROLIMUS ANHYDROUS
     Indication: HEART TRANSPLANT
     Dosage: 0.5 MG AND 1 MG (PATIENT WAS TAKING BOTH; AT A FREQUENCY OF TWICE A DAY)
     Route: 065
  5. RAPAMUNE [Suspect]
     Active Substance: SIROLIMUS
     Indication: HEART TRANSPLANT
     Route: 065
  6. RAPAMUNE [Suspect]
     Active Substance: SIROLIMUS
     Route: 048
     Dates: start: 201701

REACTIONS (6)
  - Peripheral swelling [Not Recovered/Not Resolved]
  - Pain in extremity [Recovering/Resolving]
  - Pain [Unknown]
  - Cytomegalovirus infection [Recovered/Resolved]
  - Immunosuppressant drug level decreased [Unknown]
  - Renal impairment [Recovering/Resolving]

NARRATIVE: CASE EVENT DATE: 201607
